FAERS Safety Report 15663331 (Version 1)
Quarter: 2018Q4

REPORT INFORMATION
  Report Type: Spontaneous
  Country: SE (occurrence: SE)
  Receive Date: 20181128
  Receipt Date: 20181128
  Transmission Date: 20190205
  Serious: Yes (Other)
  Sender: FDA-Public Use
  Company Number: SE-009507513-1811SWE010233

PATIENT
  Age: 29 Year
  Sex: Male
  Weight: 75 kg

DRUGS (3)
  1. DESLORATADINE. [Suspect]
     Active Substance: DESLORATADINE
     Dosage: 5 MILLIGRAM, QD
     Route: 065
     Dates: start: 20181103, end: 20181106
  2. ALVEDON [Concomitant]
     Active Substance: ACETAMINOPHEN
  3. TERBINAFINE. [Concomitant]
     Active Substance: TERBINAFINE
     Dates: start: 20181103

REACTIONS (2)
  - Libido decreased [Not Recovered/Not Resolved]
  - Erectile dysfunction [Not Recovered/Not Resolved]

NARRATIVE: CASE EVENT DATE: 20181106
